FAERS Safety Report 12541463 (Version 1)
Quarter: 2016Q3

REPORT INFORMATION
  Report Type: Spontaneous
  Country: US (occurrence: US)
  Receive Date: 20160708
  Receipt Date: 20160708
  Transmission Date: 20161109
  Serious: Yes (Other)
  Sender: FDA-Public Use
  Company Number: US-ELI_LILLY_AND_COMPANY-US201607002153

PATIENT
  Age: 65 Year
  Sex: Female

DRUGS (1)
  1. GEMCITABINE HYDROCHLORIDE. [Suspect]
     Active Substance: GEMCITABINE HYDROCHLORIDE
     Indication: ANAL CANCER
     Dosage: UNK, UNKNOWN
     Route: 065

REACTIONS (4)
  - Renal impairment [Unknown]
  - Haemolytic anaemia [Recovering/Resolving]
  - Thrombotic microangiopathy [Unknown]
  - Platelet count decreased [Recovering/Resolving]
